FAERS Safety Report 7927087 (Version 3)
Quarter: 2012Q4

REPORT INFORMATION
  Report Type: 
  Country: US (occurrence: US)
  Receive Date: 20110502
  Receipt Date: 20121214
  Transmission Date: 20130627
  Serious: Yes (Hospitalization)
  Sender: FDA-Public Use
  Company Number: US-ASTRAZENECA-2010SE33006

PATIENT
  Age: 61 Year
  Sex: Female

DRUGS (3)
  1. NEXIUM [Suspect]
     Route: 048
  2. NEXIUM [Suspect]
     Dosage: TWICE A DAY
     Route: 048
  3. NEXIUM [Suspect]
     Route: 048

REACTIONS (9)
  - Gastritis erosive [Recovered/Resolved]
  - Dysstasia [Unknown]
  - Dyspepsia [Unknown]
  - Aphagia [Unknown]
  - Pain [Unknown]
  - Gastric cyst [Unknown]
  - Malaise [Unknown]
  - Abdominal pain upper [Unknown]
  - Drug dose omission [Unknown]
